FAERS Safety Report 14971929 (Version 1)
Quarter: 2018Q2

REPORT INFORMATION
  Report Type: Spontaneous
  Country: FR (occurrence: FR)
  Receive Date: 20180605
  Receipt Date: 20180605
  Transmission Date: 20180711
  Serious: Yes (Other)
  Sender: FDA-Public Use
  Company Number: FR-BRISTOL-MYERS SQUIBB COMPANY-BMS-2018-048499

PATIENT
  Age: 22 Year
  Sex: Male
  Weight: 53 kg

DRUGS (3)
  1. PRAVASTATIN SODIUM. [Suspect]
     Active Substance: PRAVASTATIN SODIUM
     Indication: CORONARY ARTERY STENOSIS
     Dosage: 40 MG, (1 DAY)
     Route: 048
     Dates: start: 20180130, end: 20180419
  2. AMOXICILLIN CLAVULANIC ACID [Suspect]
     Active Substance: AMOXICILLIN\CLAVULANIC ACID
     Indication: ABSCESS LIMB
     Dosage: 3 G, (1 DAY)
     Route: 048
     Dates: start: 20180405, end: 20180414
  3. CIPROFLOXACINE ARROW [Suspect]
     Active Substance: CIPROFLOXACIN
     Indication: ABSCESS LIMB
     Dosage: 1000 MG, (1 DAY)
     Route: 048
     Dates: start: 20180331, end: 20180404

REACTIONS (2)
  - Hepatocellular injury [Recovering/Resolving]
  - Cholestasis [Recovering/Resolving]

NARRATIVE: CASE EVENT DATE: 20180419
